FAERS Safety Report 6528848-8 (Version None)
Quarter: 2010Q1

REPORT INFORMATION
  Report Type: 
  Country: None (occurrence: None)
  Receive Date: 20100106
  Receipt Date: 20091228
  Transmission Date: 20100710
  Serious: Yes (Death, Life-Threatening, Hospitalization)
  Sender: FDA-Public Use
  Company Number: IN-WYE-H12286609

PATIENT
  Sex: Male
  Weight: 73 kg

DRUGS (37)
  1. TEMSIROLIMUS [Suspect]
     Indication: METASTATIC RENAL CELL CARCINOMA
     Route: 042
     Dates: start: 20090807, end: 20091119
  2. ACETAMINOPHEN [Concomitant]
     Indication: PYREXIA
     Route: 048
     Dates: start: 20091111, end: 20091121
  3. PANTOPRAZOLE [Concomitant]
     Indication: GASTRITIS PROPHYLAXIS
     Route: 048
     Dates: start: 20090824, end: 20091121
  4. PANTOPRAZOLE [Concomitant]
     Indication: VOMITING
     Route: 042
     Dates: start: 20091121
  5. BETADINE [Concomitant]
     Indication: DENTAL DISORDER PROPHYLAXIS
     Dosage: GARGLES 6 TIMES DAILY
     Route: 048
     Dates: start: 20091112, end: 20091121
  6. BETADINE [Concomitant]
     Dosage: GARLES 4-6 TIMES PER DAY
     Route: 048
     Dates: start: 20091130, end: 20091204
  7. GLIPIZIDE [Concomitant]
     Indication: DIABETES MELLITUS
     Route: 048
     Dates: start: 20091119, end: 20091121
  8. GLIPIZIDE [Concomitant]
     Dates: start: 19890101, end: 20091121
  9. VOGLIBOSE [Concomitant]
     Indication: DIABETES MELLITUS
     Route: 048
     Dates: start: 20090827, end: 20091121
  10. MULTI-VITAMINS [Concomitant]
     Indication: NUTRITIONAL SUPPORT
     Dosage: 25 ^MGP^ OD
     Route: 048
     Dates: start: 20090910, end: 20091121
  11. AMLODIPINE [Concomitant]
     Indication: HYPERTENSION
     Route: 048
     Dates: start: 20090821, end: 20091203
  12. ONDANSETRON [Concomitant]
     Indication: VOMITING
     Route: 042
     Dates: start: 20091121, end: 20091203
  13. PARACETAMOL [Concomitant]
     Indication: PYREXIA
     Dosage: 1 AMP PRN
     Route: 042
     Dates: start: 20091121, end: 20091203
  14. PARACETAMOL [Concomitant]
     Route: 048
     Dates: start: 20091119, end: 20091121
  15. ACTRAPID HUMAN [Concomitant]
     Indication: HYPERGLYCAEMIA
     Dosage: ACCORDING TO REQUIREMENT
     Route: 058
     Dates: start: 20091121, end: 20091208
  16. ALBUTEROL [Concomitant]
     Indication: PROPHYLAXIS
     Route: 050
     Dates: start: 20091203
  17. LEVOFLOXACIN [Concomitant]
     Indication: INFECTION
     Route: 042
     Dates: start: 20091203
  18. CEFEPIME [Concomitant]
     Indication: INFECTION
     Route: 042
     Dates: start: 20091203
  19. CLINDAMYCIN [Concomitant]
     Indication: INFECTION PROPHYLAXIS
     Route: 042
     Dates: start: 20091203
  20. CLINDAMYCIN [Concomitant]
     Route: 042
     Dates: start: 20091202, end: 20091203
  21. FLUCONAZOLE [Concomitant]
     Indication: INFECTION
     Route: 042
     Dates: start: 20091203
  22. ENTEROGERMINA [Concomitant]
     Indication: DIARRHOEA
     Route: 048
     Dates: start: 20091201
  23. ATORVASTATIN CALCIUM [Concomitant]
     Indication: HYPERCHOLESTEROLAEMIA
     Route: 048
     Dates: start: 20091202, end: 20091203
  24. ISOSORBIDE MONONITRATE [Concomitant]
     Indication: ANGINA PECTORIS
     Route: 048
     Dates: start: 20091201, end: 20091203
  25. VITAMIN D3 [Concomitant]
     Indication: VITAMIN SUPPLEMENTATION
     Route: 048
     Dates: start: 20090910, end: 20091121
  26. BUDESONIDE [Concomitant]
     Indication: PROPHYLAXIS
     Route: 055
     Dates: start: 20091121, end: 20091210
  27. BUDESONIDE [Concomitant]
     Indication: COUGH
  28. GLIMEPIRIDE [Concomitant]
     Indication: DIABETES MELLITUS
     Route: 048
     Dates: start: 20090827, end: 20091121
  29. ALPRAZOLAM [Concomitant]
     Indication: INSOMNIA
     Route: 048
     Dates: start: 20091119, end: 20091121
  30. LORAZEPAM [Concomitant]
     Indication: INSOMNIA
     Route: 048
     Dates: start: 20091124
  31. AMINO ACIDS NOS [Concomitant]
     Indication: MEDICAL DIET
     Route: 042
     Dates: start: 20091201
  32. METOCLOPRAMIDE [Concomitant]
     Indication: GASTRITIS
     Dosage: 10 MG SOS
     Route: 042
     Dates: start: 20091129
  33. POTASSIUM CHLORIDE [Concomitant]
     Indication: HYPOKALAEMIA
     Dosage: 1 AMPULE CONTINUOUS INFUSION
     Route: 042
     Dates: start: 20091127, end: 20091203
  34. TORASEMIDE [Concomitant]
     Indication: PROPHYLAXIS
     Route: 042
     Dates: start: 20091124
  35. TORASEMIDE [Concomitant]
     Indication: FLUID OVERLOAD
  36. ALBUMIN (HUMAN) [Concomitant]
     Indication: HYPOALBUMINAEMIA
     Route: 042
     Dates: start: 20091124
  37. BEVACIZUMAB [Suspect]
     Indication: METASTATIC RENAL CELL CARCINOMA
     Route: 042
     Dates: start: 20090807, end: 20091119

REACTIONS (3)
  - COLITIS [None]
  - MULTI-ORGAN FAILURE [None]
  - SEPSIS [None]
